FAERS Safety Report 5761941-6 (Version None)
Quarter: 2008Q2

REPORT INFORMATION
  Report Type: 
  Country: None (occurrence: None)
  Receive Date: 20080603
  Receipt Date: 20080520
  Transmission Date: 20081010
  Serious: Yes (Life-Threatening, Hospitalization)
  Sender: FDA-Public Use
  Company Number: HECT-1000013

PATIENT
  Sex: Male

DRUGS (9)
  1. HECTOROL [Suspect]
     Indication: PROSTATE CANCER METASTATIC
     Dosage: 10 UG, QD, ORAL
     Route: 048
  2. DOCETAXEL [Concomitant]
  3. DEXAMETHASONE TAB [Concomitant]
  4. SEREVENT [Concomitant]
  5. AZMACORT [Concomitant]
  6. ADVIL (PSYLLIUM HYDROPHILIC MUCILLOID) [Concomitant]
  7. MECLIZINE [Concomitant]
  8. COMPAZINE (PROCHLORPERAZINE MALEATE) [Concomitant]
  9. ALBUTEROL (SALBUTAMOL SULFATE) [Concomitant]

REACTIONS (2)
  - DYSPNOEA [None]
  - PULMONARY EMBOLISM [None]
